FAERS Safety Report 24008012 (Version 2)
Quarter: 2024Q3

REPORT INFORMATION
  Report Type: Spontaneous
  Country: CA (occurrence: CA)
  Receive Date: 20240625
  Receipt Date: 20240819
  Transmission Date: 20241017
  Serious: Yes (Other)
  Sender: CELLTRION
  Company Number: CA-PFIZER INC-202300293497

PATIENT

DRUGS (13)
  1. INFLECTRA [Suspect]
     Active Substance: INFLIXIMAB-DYYB
     Indication: Crohn^s disease
     Dosage: 400 MG, AT WEEK 0, 2 AND 6 THEN EVERY 8 WEEKS
     Route: 042
     Dates: start: 20230530
  2. INFLECTRA [Suspect]
     Active Substance: INFLIXIMAB-DYYB
     Dosage: 400 MG, AT WEEK 0, 2 AND 6 THEN EVERY 8 WEEKS
     Route: 042
     Dates: start: 20230711
  3. INFLECTRA [Suspect]
     Active Substance: INFLIXIMAB-DYYB
     Dosage: 400 MG, AT WEEK 0, 2 AND 6 THEN EVERY 8 WEEKS
     Route: 042
     Dates: start: 20230905
  4. INFLECTRA [Suspect]
     Active Substance: INFLIXIMAB-DYYB
     Dosage: 400 MG, EVERY 8 WEEKS
     Route: 042
     Dates: start: 20231031, end: 20231031
  5. INFLECTRA [Suspect]
     Active Substance: INFLIXIMAB-DYYB
     Dosage: 400 MG, AT WEEK 0, 2 AND 6 THEN EVERY 8 WEEKS
     Route: 042
     Dates: start: 20231228
  6. INFLECTRA [Suspect]
     Active Substance: INFLIXIMAB-DYYB
     Dosage: 400 MG, AFTER 8 WEEKS AND 4 DAYS (PRESCRIBED EVERY 8 WEEKS)
     Route: 042
     Dates: start: 20240226
  7. INFLECTRA [Suspect]
     Active Substance: INFLIXIMAB-DYYB
     Dosage: 400 MG, AT WEEK 0, 2 AND 6 THEN EVERY 8 WEEKS
     Route: 042
     Dates: start: 20240422
  8. INFLECTRA [Suspect]
     Active Substance: INFLIXIMAB-DYYB
     Dosage: 400 MG, AT WEEK 0, 2 AND 6 THEN EVERY 8 WEEKS
     Route: 042
     Dates: start: 20240617
  9. ALENDRONATE [Concomitant]
     Active Substance: ALENDRONATE SODIUM
     Dosage: UNK
  10. PANTOPRAZOLE [Concomitant]
     Active Substance: PANTOPRAZOLE
     Dosage: UNK
  11. PREDNISONE [Concomitant]
     Active Substance: PREDNISONE
     Dosage: UNK, STOPPING PREDNISONE APPROXIMATELY 2 WEEKS AGO
     Dates: end: 202308
  12. SYNTHROID [Concomitant]
     Active Substance: LEVOTHYROXINE SODIUM
     Dosage: UNK
  13. CHOLECALCIFEROL [Concomitant]
     Active Substance: CHOLECALCIFEROL
     Dosage: UNK

REACTIONS (8)
  - Lupus-like syndrome [Recovered/Resolved]
  - Arthralgia [Not Recovered/Not Resolved]
  - Urticaria [Recovering/Resolving]
  - Aphthous ulcer [Recovered/Resolved]
  - Mouth ulceration [Recovered/Resolved]
  - Off label use [Unknown]
  - Intentional product use issue [Unknown]
  - Inappropriate schedule of product administration [Unknown]

NARRATIVE: CASE EVENT DATE: 20230801
